FAERS Safety Report 7536892-7 (Version None)
Quarter: 2011Q2

REPORT INFORMATION
  Report Type: 
  Country: None (occurrence: None)
  Receive Date: 20110609
  Receipt Date: 20110531
  Transmission Date: 20111010
  Serious: Yes (Other)
  Sender: FDA-Public Use
  Company Number: US-ELI_LILLY_AND_COMPANY-US200912002753

PATIENT
  Sex: Male

DRUGS (7)
  1. INSULIN [Concomitant]
     Dosage: 7 U, 4/D
  2. ORAL ANTIDIABETICS [Concomitant]
     Dosage: UNK, 2/D
  3. INSULIN [Concomitant]
     Dosage: 28 U, UNKNOWN
  4. BYETTA [Suspect]
     Dosage: 5 UG, BID
     Route: 058
     Dates: end: 20090101
  5. LANTUS [Concomitant]
     Dosage: 20 U, UNKNOWN
  6. BETA BLOCKING AGENTS [Concomitant]
     Dosage: UNK, UNKNOWN
  7. LANTUS [Concomitant]
     Dosage: 75 U, UNKNOWN

REACTIONS (5)
  - INCREASED INSULIN REQUIREMENT [None]
  - BLOOD GLUCOSE INCREASED [None]
  - LIVER DISORDER [None]
  - PANCREATITIS [None]
  - OFF LABEL USE [None]
